FAERS Safety Report 7945861-4 (Version None)
Quarter: 2011Q4

REPORT INFORMATION
  Report Type: 
  Country: None (occurrence: None)
  Receive Date: 20111125
  Receipt Date: 20111115
  Transmission Date: 20120403
  Serious: Yes (Other)
  Sender: FDA-Public Use
  Company Number: 1000024832

PATIENT
  Sex: Male

DRUGS (1)
  1. ESCITALOPRAM OXALATE [Suspect]
     Dosage: (10 MG),ORAL
     Route: 048

REACTIONS (2)
  - LEGAL PROBLEM [None]
  - ROAD TRAFFIC ACCIDENT [None]
